FAERS Safety Report 9169739 (Version 2)
Quarter: 2013Q1

REPORT INFORMATION
  Report Type: Spontaneous
  Country: FR (occurrence: FR)
  Receive Date: 20130318
  Receipt Date: 20130321
  Transmission Date: 20140127
  Serious: Yes (Hospitalization)
  Sender: FDA-Public Use
  Company Number: FR-009507513-1303FRA003944

PATIENT
  Age: 37 Year
  Sex: Female

DRUGS (3)
  1. INTRONA [Suspect]
     Dosage: UNK
     Route: 058
     Dates: start: 20021015, end: 20030115
  2. INTERFERON (UNSPECIFIED) [Suspect]
     Dosage: UNK
     Route: 058
     Dates: start: 1999
  3. TRIZIVIR [Suspect]
     Dosage: UNK
     Dates: start: 200303

REACTIONS (1)
  - Pulmonary arterial hypertension [Not Recovered/Not Resolved]
